FAERS Safety Report 23932724 (Version 1)
Quarter: 2024Q2

REPORT INFORMATION
  Report Type: Spontaneous
  Country: US (occurrence: US)
  Receive Date: 20240603
  Receipt Date: 20240603
  Transmission Date: 20240715
  Serious: No
  Sender: FDA-Public Use
  Company Number: US-TAKEDA-2024TUS053464

PATIENT
  Sex: Female

DRUGS (4)
  1. CARBAMAZEPINE [Suspect]
     Active Substance: CARBAMAZEPINE
     Indication: Neuralgia
     Dosage: UNK
     Route: 065
  2. CARBAMAZEPINE [Suspect]
     Active Substance: CARBAMAZEPINE
     Dosage: UNK, BID
     Route: 048
  3. VARICELLA-ZOSTER VACCINE NOS [Suspect]
     Active Substance: VARICELLA-ZOSTER VACCINE
     Indication: Product used for unknown indication
     Dosage: UNK
     Route: 065
  4. PREGABALIN [Concomitant]
     Active Substance: PREGABALIN
     Dosage: UNK
     Route: 065

REACTIONS (11)
  - Neuralgia [Not Recovered/Not Resolved]
  - Somnolence [Unknown]
  - Dysgeusia [Unknown]
  - Illness [Unknown]
  - Pain [Unknown]
  - Nasopharyngitis [Unknown]
  - Immunisation reaction [Unknown]
  - Fatigue [Unknown]
  - Chills [Unknown]
  - Tremor [Unknown]
  - Wrong technique in product usage process [Unknown]
